FAERS Safety Report 19540655 (Version 1)
Quarter: 2021Q3

REPORT INFORMATION
  Report Type: Spontaneous
  Country: US (occurrence: US)
  Receive Date: 20210713
  Receipt Date: 20210713
  Transmission Date: 20211014
  Serious: No
  Sender: FDA-Public Use
  Company Number: US-ALLERGAN-2125448US

PATIENT
  Sex: Female

DRUGS (1)
  1. LILETTA [Suspect]
     Active Substance: LEVONORGESTREL
     Indication: POST COITAL CONTRACEPTION
     Dosage: 52 MG, SINGLE
     Route: 015

REACTIONS (3)
  - Pregnancy [Unknown]
  - Off label use [Unknown]
  - Drug ineffective for unapproved indication [Unknown]
